FAERS Safety Report 18512730 (Version 1)
Quarter: 2020Q4

REPORT INFORMATION
  Report Type: Spontaneous
  Country: US (occurrence: US)
  Receive Date: 20201117
  Receipt Date: 20201117
  Transmission Date: 20210114
  Serious: Yes (Other)
  Sender: FDA-Public Use
  Company Number: US-SLATE RUN PHARMACEUTICALS-20US000326

PATIENT

DRUGS (3)
  1. TRIMETHOPRIM SULFAMETHOXAZOLE [Suspect]
     Active Substance: SULFAMETHOXAZOLE\TRIMETHOPRIM
     Indication: RETINITIS
     Route: 065
  2. GANCICLOVIR USP [Suspect]
     Active Substance: GANCICLOVIR
     Indication: RETINITIS VIRAL
     Route: 065
  3. FOSCARNET [Suspect]
     Active Substance: FOSCARNET
     Indication: RETINITIS VIRAL

REACTIONS (4)
  - Tractional retinal detachment [Recovered/Resolved]
  - Rhegmatogenous retinal detachment [Recovered/Resolved]
  - Chronic kidney disease [Unknown]
  - Retinitis [Not Recovered/Not Resolved]
